FAERS Safety Report 9931803 (Version 1)
Quarter: 2014Q1

REPORT INFORMATION
  Report Type: Spontaneous
  Country: US (occurrence: None)
  Receive Date: 20140227
  Receipt Date: 20140227
  Transmission Date: 20141002
  Serious: Yes (Disabling)
  Sender: FDA-Public Use
  Company Number: None

PATIENT
  Age: 33 Year
  Sex: Male
  Weight: 90.72 kg

DRUGS (1)
  1. AZITHROMYCIN 250 [Suspect]
     Indication: COUGH
     Dosage: 5 PILLS ONCE DAILY
     Route: 048
     Dates: start: 20140222, end: 20140225

REACTIONS (2)
  - Tendon pain [None]
  - Tendon rupture [None]
